FAERS Safety Report 6990728-1 (Version None)
Quarter: 2010Q3

REPORT INFORMATION
  Report Type: 
  Country: None (occurrence: None)
  Receive Date: 20100916
  Receipt Date: 20100719
  Transmission Date: 20110219
  Serious: Yes (Other)
  Sender: FDA-Public Use
  Company Number: US-PFIZER INC-2010090114

PATIENT
  Sex: Female
  Weight: 92.517 kg

DRUGS (6)
  1. LYRICA [Suspect]
     Indication: FIBROMYALGIA
     Dosage: 75 MG, 2X/DAY
     Route: 048
     Dates: start: 20091201
  2. CYMBALTA [Concomitant]
     Indication: PAIN
     Dosage: 30MG AM, 60MG PM
     Route: 048
  3. CYMBALTA [Concomitant]
     Indication: DEPRESSION
  4. PERCOCET [Concomitant]
     Indication: PAIN
     Dosage: 10/325 MG, 4X/DAY
     Route: 048
  5. VITAMIN D [Concomitant]
     Indication: VITAMIN D DEFICIENCY
     Dosage: 1000 MG, 2X/DAY
  6. CALCIUM [Concomitant]
     Dosage: 1250 MG, 2X/DAY

REACTIONS (14)
  - AMNESIA [None]
  - ARTHRALGIA [None]
  - DISTURBANCE IN ATTENTION [None]
  - DIZZINESS [None]
  - DRY MOUTH [None]
  - FEELING ABNORMAL [None]
  - HYPOAESTHESIA [None]
  - INSOMNIA [None]
  - JOINT EFFUSION [None]
  - JOINT SWELLING [None]
  - MUSCLE SPASMS [None]
  - SCAB [None]
  - TRANSIENT ISCHAEMIC ATTACK [None]
  - TREMOR [None]
